FAERS Safety Report 7389564-6 (Version None)
Quarter: 2011Q2

REPORT INFORMATION
  Report Type: 
  Country: None (occurrence: None)
  Receive Date: 20110401
  Receipt Date: 20110322
  Transmission Date: 20111010
  Serious: Yes (Other)
  Sender: FDA-Public Use
  Company Number: PHHY2011BR24382

PATIENT
  Sex: Male

DRUGS (2)
  1. DIOVAN [Suspect]
  2. SELOZOK [Concomitant]

REACTIONS (1)
  - HYPERTENSION [None]
